FAERS Safety Report 23416402 (Version 2)
Quarter: 2024Q1

REPORT INFORMATION
  Report Type: Spontaneous
  Country: CA (occurrence: CA)
  Receive Date: 20240118
  Receipt Date: 20240123
  Transmission Date: 20240410
  Serious: Yes (Other)
  Sender: FDA-Public Use
  Company Number: CA-PFIZER INC-202400010942

PATIENT
  Age: 53 Year
  Sex: Male

DRUGS (3)
  1. ABRILADA [Suspect]
     Active Substance: ADALIMUMAB-AFZB
     Indication: Crohn^s disease
     Dosage: 40 MG, WEEKLY EVERY 7 DAYS (PREFILLED PEN)
     Route: 058
     Dates: start: 20220420
  2. ABRILADA [Suspect]
     Active Substance: ADALIMUMAB-AFZB
     Dosage: 40 MG, WEEKLY EVERY 7 DAYS (PREFILLED PEN)
     Route: 058
     Dates: start: 20240102
  3. ABRILADA [Suspect]
     Active Substance: ADALIMUMAB-AFZB
     Dosage: 40 MG, WEEKLY, EVERY 7 DAYS, PREFILLED PEN (40MG AFTER 1 WEEK AND 2 DAYS)
     Route: 058
     Dates: start: 20240111

REACTIONS (4)
  - Bronchitis [Recovering/Resolving]
  - Productive cough [Recovering/Resolving]
  - Sputum discoloured [Recovering/Resolving]
  - Dyspnoea [Recovering/Resolving]

NARRATIVE: CASE EVENT DATE: 20240101
